FAERS Safety Report 21130783 (Version 2)
Quarter: 2025Q2

REPORT INFORMATION
  Report Type: Spontaneous
  Country: US (occurrence: US)
  Receive Date: 20220726
  Receipt Date: 20250621
  Transmission Date: 20250716
  Serious: Yes (Other)
  Sender: AUROBINDO
  Company Number: US-AUROBINDO-AUR-APL-2022-029061

PATIENT
  Age: 69 Year
  Sex: Male

DRUGS (5)
  1. PHENTERMINE [Suspect]
     Active Substance: PHENTERMINE
     Indication: Weight decreased
     Route: 048
  2. METHAMPHETAMINE [Concomitant]
     Active Substance: METHAMPHETAMINE
     Indication: Product used for unknown indication
     Route: 065
  3. QUETIAPINE [Concomitant]
     Active Substance: QUETIAPINE
     Indication: Product used for unknown indication
     Route: 065
  4. ASPIRIN [Concomitant]
     Active Substance: ASPIRIN
     Indication: Product used for unknown indication
     Route: 065
  5. LISINOPRIL [Concomitant]
     Active Substance: LISINOPRIL
     Indication: Product used for unknown indication
     Route: 065

REACTIONS (2)
  - Multiple organ dysfunction syndrome [Unknown]
  - Intentional overdose [Unknown]
